FAERS Safety Report 5908633-8 (Version None)
Quarter: 2008Q4

REPORT INFORMATION
  Report Type: 
  Country: None (occurrence: None)
  Receive Date: 20081001
  Receipt Date: 20080922
  Transmission Date: 20090506
  Serious: Yes (Death, Hospitalization)
  Sender: FDA-Public Use
  Company Number: 2008AP002407

PATIENT
  Age: 64 Year
  Sex: Female

DRUGS (5)
  1. CYCLOSPORINE [Suspect]
     Indication: IMMUNOSUPPRESSION
  2. PREDNISONE TAB [Suspect]
     Indication: IMMUNOSUPPRESSION
  3. MYCOPHENOLATE MOFETIL [Suspect]
     Indication: IMMUNOSUPPRESSION
  4. METHYLPREDNISOLONE [Suspect]
     Indication: IMMUNOSUPPRESSION
  5. RITUXIMAB [Suspect]
     Indication: IMMUNOSUPPRESSION
     Dosage: 1 X

REACTIONS (14)
  - ASPERGILLOSIS [None]
  - ASTHENIA [None]
  - BLOOD UREA INCREASED [None]
  - COUGH [None]
  - CYTOMEGALOVIRUS INFECTION [None]
  - FATIGUE [None]
  - HAEMOGLOBIN DECREASED [None]
  - LARGE INTESTINE PERFORATION [None]
  - LEFT VENTRICULAR HYPERTROPHY [None]
  - PANCYTOPENIA [None]
  - PYREXIA [None]
  - TRANSPLANT FAILURE [None]
  - TRANSPLANT REJECTION [None]
  - WHITE BLOOD CELL COUNT DECREASED [None]
